FAERS Safety Report 13532977 (Version 1)
Quarter: 2017Q2

REPORT INFORMATION
  Report Type: Report from Study
  Country: US (occurrence: US)
  Receive Date: 20170510
  Receipt Date: 20170510
  Transmission Date: 20170830
  Serious: Yes (Other)
  Sender: FDA-Public Use
  Company Number: US-ASTRAZENECA-2017SE47204

PATIENT
  Age: 891 Month
  Sex: Female
  Weight: 75.3 kg

DRUGS (2)
  1. AZD2171 [Suspect]
     Active Substance: CEDIRANIB
     Indication: OVARIAN CANCER
     Route: 048
     Dates: start: 20170310
  2. AZD2281 [Suspect]
     Active Substance: OLAPARIB
     Indication: OVARIAN CANCER
     Route: 048
     Dates: start: 20170310

REACTIONS (1)
  - Alanine aminotransferase increased [Recovering/Resolving]

NARRATIVE: CASE EVENT DATE: 20170407
